FAERS Safety Report 6631201-X (Version None)
Quarter: 2010Q1

REPORT INFORMATION
  Report Type: 
  Country: None (occurrence: None)
  Receive Date: 20100309
  Receipt Date: 20100222
  Transmission Date: 20100710
  Serious: Yes (Death)
  Sender: FDA-Public Use
  Company Number: NPIL/SEV/H/2010/06 DPC10-0011

PATIENT
  Age: 66 Year
  Sex: Female

DRUGS (4)
  1. SEVOFLURANE [Suspect]
     Indication: BIOPSY LYMPH GLAND
     Dosage: 1L/MIN, ONCE, INHALATION
     Route: 055
  2. SEVOFLURANE [Suspect]
     Indication: MASTECTOMY
     Dosage: 1L/MIN, ONCE, INHALATION
     Route: 055
  3. PROPOFOL [Concomitant]
  4. SUFENTANIL [Concomitant]

REACTIONS (1)
  - HEPATIC FAILURE [None]
